FAERS Safety Report 5788008-5 (Version None)
Quarter: 2008Q2

REPORT INFORMATION
  Report Type: 
  Country: None (occurrence: None)
  Receive Date: 20080625
  Receipt Date: 20080613
  Transmission Date: 20081010
  Serious: Yes (Other)
  Sender: FDA-Public Use
  Company Number: FR-ELI_LILLY_AND_COMPANY-FR200706002042

PATIENT
  Age: 57 Year
  Sex: Female

DRUGS (2)
  1. OPTRUMA [Suspect]
     Dosage: UNK, DAILY (1/D)
     Route: 048
     Dates: start: 20060301
  2. ANTINEOPLASTIC AGENTS [Concomitant]
     Dosage: UNK, UNKNOWN
     Route: 065

REACTIONS (1)
  - UTERINE CANCER [None]
